FAERS Safety Report 12926173 (Version 2)
Quarter: 2018Q3

REPORT INFORMATION
  Report Type: Spontaneous
  Country: US (occurrence: US)
  Receive Date: 20161108
  Receipt Date: 20180712
  Transmission Date: 20181010
  Serious: No
  Sender: FDA-Public Use
  Company Number: US-SA-2016SA174573

PATIENT
  Age: 79 Year
  Sex: Female

DRUGS (16)
  1. VOLTAREN [DICLOFENAC] [Concomitant]
     Active Substance: DICLOFENAC SODIUM
  2. PRALUENT [Suspect]
     Active Substance: ALIROCUMAB
     Indication: BLOOD CHOLESTEROL INCREASED
     Dosage: 75 MG,QOW
     Route: 058
     Dates: start: 201606
  3. AMOXICILLIN. [Concomitant]
     Active Substance: AMOXICILLIN
  4. CLOPIDOGREL [Concomitant]
     Active Substance: CLOPIDOGREL BISULFATE
  5. FLUTICASONE. [Concomitant]
     Active Substance: FLUTICASONE
  6. PANTOPRAZOLE [Concomitant]
     Active Substance: PANTOPRAZOLE
  7. SERTRALINE [SERTRALINE HYDROCHLORIDE] [Concomitant]
  8. LISINOPRIL. [Concomitant]
     Active Substance: LISINOPRIL
  9. METOPROLOL [METOPROLOL TARTRATE] [Concomitant]
  10. AZELASTINE. [Concomitant]
     Active Substance: AZELASTINE HYDROCHLORIDE
  11. HYOSCYAMINE. [Concomitant]
     Active Substance: HYOSCYAMINE
  12. PANTOPRAZOLE [Concomitant]
     Active Substance: PANTOPRAZOLE
  13. PRALUENT [Suspect]
     Active Substance: ALIROCUMAB
     Indication: OSTEOARTHRITIS
  14. CARVEDILOL. [Concomitant]
     Active Substance: CARVEDILOL
  15. MEMANTIN [Concomitant]
     Active Substance: MEMANTINE
  16. LIDOCAINE. [Concomitant]
     Active Substance: LIDOCAINE

REACTIONS (4)
  - Muscle spasms [Unknown]
  - Arthralgia [Unknown]
  - Joint noise [Unknown]
  - Sleep disorder [Unknown]

NARRATIVE: CASE EVENT DATE: 2016
